FAERS Safety Report 16635687 (Version 1)
Quarter: 2019Q3

REPORT INFORMATION
  Report Type: Report from Study
  Country: KR (occurrence: KR)
  Receive Date: 20190726
  Receipt Date: 20190726
  Transmission Date: 20191004
  Serious: Yes (Death, Other)
  Sender: FDA-Public Use
  Company Number: KR-AUROBINDO-AUR-APL-2019-044291

PATIENT

DRUGS (5)
  1. MELPHALAN INJECTION [Suspect]
     Active Substance: MELPHALAN
     Indication: PROPHYLAXIS
     Dosage: 100 MILLIGRAM/SQ. METER, ON DAY -2
     Route: 042
  2. IMMUNE GLOBULIN NOS [Concomitant]
     Active Substance: IMMUNE GLOBULIN NOS
     Indication: PROPHYLAXIS
     Dosage: UNK
     Route: 065
  3. FLUDARABINE [Suspect]
     Active Substance: FLUDARABINE PHOSPHATE
     Indication: PROPHYLAXIS
     Dosage: 30 MILLIGRAM/SQ. METER, ONCE A DAY, FOR 5 CONSECUTLVE DAYS (ON DAYS -6 TO -2)
     Route: 042
  4. GRANULOCYTE COLONY STIMULATING FACTOR [Concomitant]
     Active Substance: GRANULOCYTE COLONY-STIMULATING FACTOR NOS
     Indication: PROPHYLAXIS
     Dosage: UNK
     Route: 065
  5. CICLOSPORIN [Suspect]
     Active Substance: CYCLOSPORINE
     Indication: PROPHYLAXIS
     Dosage: 1.5 MILLIGRAM/KILOGRAM, TWO TIMES A DAY
     Route: 042

REACTIONS (1)
  - Pneumonia [Fatal]
